FAERS Safety Report 23085055 (Version 1)
Quarter: 2023Q4

REPORT INFORMATION
  Report Type: Spontaneous
  Country: CN (occurrence: CN)
  Receive Date: 20231019
  Receipt Date: 20231019
  Transmission Date: 20240109
  Serious: Yes (Hospitalization, Other)
  Sender: FDA-Public Use
  Company Number: CN-009507513-2310CHN008254

PATIENT
  Age: 67 Year
  Sex: Male
  Weight: 55 kg

DRUGS (3)
  1. KEYTRUDA [Suspect]
     Active Substance: PEMBROLIZUMAB
     Indication: Lung neoplasm malignant
     Dosage: 200 MG, ONCE
     Route: 041
     Dates: start: 20230912, end: 20230912
  2. CARBOPLATIN [Concomitant]
     Active Substance: CARBOPLATIN
     Indication: Lung neoplasm malignant
     Dosage: 450 MG, ONCE
     Route: 041
     Dates: start: 20230912, end: 20230912
  3. ALIMTA [Concomitant]
     Active Substance: PEMETREXED DISODIUM
     Indication: Lung neoplasm malignant
     Dosage: 800 MG, ONCE
     Route: 041
     Dates: start: 20230912, end: 20230912

REACTIONS (3)
  - Immune-mediated myositis [Recovering/Resolving]
  - Myocarditis [Recovering/Resolving]
  - Immune-mediated hepatic disorder [Recovering/Resolving]

NARRATIVE: CASE EVENT DATE: 20231007
